FAERS Safety Report 7292903 (Version 2)
Quarter: 2013Q3

REPORT INFORMATION
  Report Type: Spontaneous
  Country: US (occurrence: US)
  Receive Date: 20090518
  Receipt Date: 20130705
  Transmission Date: 20140515
  Serious: Yes (Other)
  Sender: FDA-Public Use
  Company Number: CHPA2009US11423

PATIENT
  Sex: Male

DRUGS (3)
  1. EXCEDRIN EXTRA STRENGTH [Suspect]
     Route: 048
     Dates: start: 20090501, end: 20090504
  2. COCAINE [Suspect]
  3. ANTI-SMOKING AGENTS [Concomitant]
     Indication: SMOKING CESSATION THERAPY
     Route: 062

REACTIONS (4)
  - Loss of consciousness [Recovered/Resolved]
  - Head injury [Not Recovered/Not Resolved]
  - Swelling face [Recovered/Resolved]
  - Tinnitus [Not Recovered/Not Resolved]
